FAERS Safety Report 16253408 (Version 1)
Quarter: 2019Q2

REPORT INFORMATION
  Report Type: Spontaneous
  Country: CZ (occurrence: CZ)
  Receive Date: 20190430
  Receipt Date: 20190430
  Transmission Date: 20190711
  Serious: Yes (Other)
  Sender: FDA-Public Use
  Company Number: CZ-AUROBINDO-AUR-APL-2019-022816

PATIENT

DRUGS (7)
  1. LACOSAMIDE. [Concomitant]
     Active Substance: LACOSAMIDE
     Indication: EPILEPSY
     Dosage: UNKNOWN DOSE
     Route: 048
  2. LACOSAMIDE. [Concomitant]
     Active Substance: LACOSAMIDE
     Dosage: 100 MILLIGRAM, TWO TIMES A DAY (100 MG, 2X/DAY (BID)
     Route: 048
  3. LAMOTRIGINE. [Concomitant]
     Active Substance: LAMOTRIGINE
     Dosage: 300 MILLIGRAM, ONCE A DAY
     Route: 048
  4. LEVETIRACETAM. [Suspect]
     Active Substance: LEVETIRACETAM
     Indication: EPILEPSY
     Dosage: 2500 MILLIGRAM, DAILY
     Route: 048
  5. LEVETIRACETAM. [Suspect]
     Active Substance: LEVETIRACETAM
     Dosage: UNKNOWN DOSE
     Route: 048
  6. LEVETIRACETAM. [Suspect]
     Active Substance: LEVETIRACETAM
     Dosage: 3500 MILLIGRAM, ONCE A DAY
     Route: 048
     Dates: start: 201709
  7. LAMOTRIGINE. [Concomitant]
     Active Substance: LAMOTRIGINE
     Indication: EPILEPSY
     Dosage: 100 MILLIGRAM, TWO TIMES A DAY (100 MG, 2X/DAY (BID)
     Route: 048

REACTIONS (3)
  - Irritability [Unknown]
  - Mood altered [Unknown]
  - Generalised tonic-clonic seizure [Unknown]
